FAERS Safety Report 17548388 (Version 2)
Quarter: 2020Q3

REPORT INFORMATION
  Report Type: Spontaneous
  Country: US (occurrence: US)
  Receive Date: 20200317
  Receipt Date: 20200803
  Transmission Date: 20201102
  Serious: Yes (Hospitalization, Other)
  Sender: FDA-Public Use
  Company Number: US-AMGEN-USASP2020043999

PATIENT
  Age: 79 Year
  Sex: Female
  Weight: 70.7 kg

DRUGS (29)
  1. ZYLOPRIM [Concomitant]
     Active Substance: ALLOPURINOL
     Dosage: 300 MILLIGRAM, QD
     Route: 048
     Dates: start: 20190411
  2. METFORMIN [Concomitant]
     Active Substance: METFORMIN HYDROCHLORIDE
     Dosage: 1000 MILLIGRAM, ONE IN MORNING AND 1/2 IN EVENING
     Route: 048
     Dates: start: 20200117
  3. DUONEB [Concomitant]
     Active Substance: ALBUTEROL SULFATE\IPRATROPIUM BROMIDE
     Dosage: 0.5?2.5 (3)MG/3ML , TID
     Dates: start: 20200210
  4. MYCOSTATIN [Concomitant]
     Active Substance: NYSTATIN
     Dosage: 500000 UNIT, QID FOR 14 DAYS
     Route: 048
  5. ONDANSETRON [Concomitant]
     Active Substance: ONDANSETRON
     Dosage: 4 MILLIGRAM
     Route: 048
  6. MVASI [Suspect]
     Active Substance: BEVACIZUMAB-AWWB
     Indication: PRODUCT USED FOR UNKNOWN INDICATION
     Dosage: 730 MILLIGRAM, Q4WK
     Route: 042
     Dates: start: 20191231
  7. ZESTORETIC [Concomitant]
     Active Substance: HYDROCHLOROTHIAZIDE\LISINOPRIL
     Dosage: 20MG?12.5MG
  8. HUMALOG [Concomitant]
     Active Substance: INSULIN LISPRO
     Dosage: 3 TO 9 UNITS TOTAL, BID
     Route: 058
  9. AMARYL [Concomitant]
     Active Substance: GLIMEPIRIDE
     Dosage: 4 MILLIGRAM, QD
     Route: 048
     Dates: start: 20200117
  10. TYLENOL [Concomitant]
     Active Substance: ACETAMINOPHEN
     Dosage: 650 MILLIGRAM, Q4H AS NEEDED
  11. HUMALOG [Concomitant]
     Active Substance: INSULIN LISPRO
     Dosage: 3 TO 12 UNITS TOTAL, TID
     Route: 058
  12. GLUCAGEN [GLUCAGON] [Concomitant]
     Dosage: 1 MILLIGRAM, AS NECESSARY
     Route: 030
     Dates: start: 202002
  13. ZYLOPRIM [Concomitant]
     Active Substance: ALLOPURINOL
     Dosage: 150 MILLIGRAM, QD
     Route: 048
     Dates: start: 20181120
  14. COMPAZINE [PROCHLORPERAZINE EDISYLATE] [Concomitant]
     Active Substance: PROCHLORPERAZINE EDISYLATE
     Dosage: 10 MILLIGRAM
     Route: 048
  15. DEXTROSE. [Concomitant]
     Active Substance: DEXTROSE
     Dosage: 12.5 GRAM, AS NECESSARY
     Route: 042
     Dates: start: 202002
  16. LOVENOX [Concomitant]
     Active Substance: ENOXAPARIN SODIUM
     Dosage: 40 MILLIGRAM, QD
     Route: 058
     Dates: start: 202002
  17. APRESOLINE HYDROCHLORIDE [Concomitant]
     Active Substance: HYDRALAZINE HYDROCHLORIDE
     Dosage: 10 MILLIGRAM, Q8H
     Route: 042
     Dates: start: 202002
  18. DEMADEX [Concomitant]
     Active Substance: TORSEMIDE
     Dosage: 20 MILLIGRAM
     Route: 048
  19. COLACE [Concomitant]
     Active Substance: DOCUSATE SODIUM
     Dosage: 100 MILLIGRAM, BID
     Route: 048
     Dates: start: 20190827
  20. SENOKOT [Concomitant]
     Active Substance: SENNOSIDES
     Dosage: 8.6 MILLIGRAM, QHS
     Route: 048
  21. PEPCID [Concomitant]
     Active Substance: FAMOTIDINE
     Indication: GASTROOESOPHAGEAL REFLUX DISEASE
     Dosage: 40 MILLIGRAM, QD
     Route: 048
     Dates: start: 20200201
  22. AVASTIN [Concomitant]
     Active Substance: BEVACIZUMAB
     Dosage: 25 MILLIGRAM PER MILLILITRE
  23. TENORMIN [Concomitant]
     Active Substance: ATENOLOL
     Dosage: 50 MILLIGRAM, QD
     Route: 048
     Dates: start: 20191125
  24. COLCRYS [Concomitant]
     Active Substance: COLCHICINE
     Dosage: 0.6 MILLIGRAM, QD AS NEEDED
     Route: 048
     Dates: start: 20181120
  25. OCEAN SALINE NASAL SPRAY [Concomitant]
     Active Substance: SODIUM CHLORIDE
     Dosage: UNK UNK, QID AS NEEDED
  26. GLYCOLAX [Concomitant]
     Active Substance: POLYETHYLENE GLYCOL 3350
     Indication: CONSTIPATION
     Dosage: 17 GRAM, QD AS NECESSARY
     Route: 048
  27. PROTONIX [Concomitant]
     Active Substance: PANTOPRAZOLE SODIUM
     Dosage: 40 MILLIGRAM, QD
     Dates: start: 202002
  28. DELTASONE [PREDNISOLONE] [Concomitant]
     Dosage: 40 MILLIGRAM, QD
     Route: 048
     Dates: start: 202002
  29. DEMADEX [Concomitant]
     Active Substance: TORSEMIDE
     Dosage: 20 MILLIGRAM, QD
     Route: 048
     Dates: start: 202002

REACTIONS (10)
  - Hyponatraemia [Not Recovered/Not Resolved]
  - Gastrooesophageal reflux disease [Not Recovered/Not Resolved]
  - Acute left ventricular failure [Unknown]
  - Lymphangitis [Not Recovered/Not Resolved]
  - Weight decreased [Unknown]
  - Insomnia [Unknown]
  - Vision blurred [Unknown]
  - Fatigue [Not Recovered/Not Resolved]
  - Back pain [Unknown]
  - Pneumonia chlamydial [Not Recovered/Not Resolved]

NARRATIVE: CASE EVENT DATE: 202001
